FAERS Safety Report 7541047-6 (Version None)
Quarter: 2011Q2

REPORT INFORMATION
  Report Type: 
  Country: None (occurrence: None)
  Receive Date: 20110610
  Receipt Date: 20110603
  Transmission Date: 20111010
  Serious: Yes (Death)
  Sender: FDA-Public Use
  Company Number: AR-UCBSA-034691

PATIENT
  Sex: Female

DRUGS (10)
  1. CERTOLIZUMAB PEGOL [Suspect]
     Dosage: CDP870-027
     Route: 058
     Dates: start: 20060118, end: 20060816
  2. CERTOLIZUMAB PEGOL [Suspect]
     Dosage: CDP870-028
     Route: 058
     Dates: start: 20080411, end: 20100716
  3. CERTOLIZUMAB PEGOL [Suspect]
     Dosage: CDP870-028
     Route: 058
     Dates: start: 20060830, end: 20070801
  4. LEVONORGESTREL + ETINILESTRADIOL [Concomitant]
     Indication: CONTRACEPTION
     Dosage: 0.5/0.03MG
     Route: 048
     Dates: start: 20090528, end: 20110427
  5. CERTOLIZUMAB PEGOL [Suspect]
     Indication: RHEUMATOID ARTHRITIS
     Dosage: CDP870-027
     Route: 058
     Dates: start: 20050831, end: 20051221
  6. IBUPROPHEN [Concomitant]
     Indication: RHEUMATOID ARTHRITIS
     Route: 048
     Dates: start: 20080327, end: 20110427
  7. CERTOLIZUMAB PEGOL [Suspect]
     Dosage: CDP870-028
     Route: 058
     Dates: start: 20070831, end: 20080326
  8. METHOTREXATE [Concomitant]
     Indication: RHEUMATOID ARTHRITIS
     Dosage: PER WEEK
     Route: 048
     Dates: start: 20071109, end: 20101101
  9. METHOTREXATE [Concomitant]
     Dosage: PER WEEK
     Route: 048
     Dates: start: 20101102, end: 20110427
  10. FOLIC ACID [Concomitant]
     Indication: RHEUMATOID ARTHRITIS
     Dosage: PER WEEK
     Route: 048
     Dates: start: 20070929, end: 20110427

REACTIONS (1)
  - ACUTE LYMPHOCYTIC LEUKAEMIA [None]
